FAERS Safety Report 23047781 (Version 1)
Quarter: 2023Q4

REPORT INFORMATION
  Report Type: Spontaneous
  Country: GB (occurrence: GB)
  Receive Date: 20231010
  Receipt Date: 20231010
  Transmission Date: 20240109
  Serious: Yes (Other)
  Sender: FDA-Public Use
  Company Number: GB-MHRA-MED-202310031620195690-TFBJC

PATIENT
  Age: 59 Year
  Sex: Female
  Weight: 64 kg

DRUGS (8)
  1. VUMERITY [Suspect]
     Active Substance: DIROXIMEL FUMARATE
     Indication: Multiple sclerosis
     Dosage: GASTRO RESISTANT
     Route: 050
     Dates: start: 20230923, end: 20231003
  2. TECFIDERA [Concomitant]
     Active Substance: DIMETHYL FUMARATE
     Indication: Multiple sclerosis
     Route: 050
  3. BOTOX [Concomitant]
     Active Substance: ONABOTULINUMTOXINA
     Indication: Multiple sclerosis
     Route: 050
     Dates: start: 20190619
  4. DENOSUMAB [Concomitant]
     Active Substance: DENOSUMAB
     Indication: Osteoporosis
     Route: 050
     Dates: start: 20221022
  5. DOCUSATE [Concomitant]
     Active Substance: DOCUSATE
     Indication: Faeces hard
     Route: 050
     Dates: start: 20190403
  6. NITROFURANTOIN [Concomitant]
     Active Substance: NITROFURANTOIN
     Indication: Urinary tract infection
     Route: 050
     Dates: start: 20230824, end: 20230827
  7. COMIRNATY (TOZINAMERAN) [Concomitant]
     Active Substance: TOZINAMERAN
     Indication: COVID-19 immunisation
     Route: 050
     Dates: start: 20230926, end: 20230926
  8. VITAMIN D3 [Concomitant]
     Active Substance: CHOLECALCIFEROL
     Indication: Multiple sclerosis
     Route: 050
     Dates: start: 20170401

REACTIONS (7)
  - Gastrointestinal pain [Recovered/Resolved]
  - Tremor [Not Recovered/Not Resolved]
  - Malaise [Not Recovered/Not Resolved]
  - Dizziness postural [Recovered/Resolved]
  - Confusional state [Recovered/Resolved]
  - Feeling hot [Recovered/Resolved]
  - Gastrointestinal pain [Recovered/Resolved]

NARRATIVE: CASE EVENT DATE: 20230923
